FAERS Safety Report 7517975-4 (Version None)
Quarter: 2011Q2

REPORT INFORMATION
  Report Type: 
  Country: None (occurrence: None)
  Receive Date: 20110531
  Receipt Date: 20110531
  Transmission Date: 20111010
  Serious: Yes (Congenital Anomaly)
  Sender: FDA-Public Use
  Company Number: None

PATIENT
  Sex: Female
  Weight: 2.7216 kg

DRUGS (1)
  1. LEXAPRO [Suspect]

REACTIONS (2)
  - DEAFNESS CONGENITAL [None]
  - MATERNAL DRUGS AFFECTING FOETUS [None]
